FAERS Safety Report 6432417-8 (Version None)
Quarter: 2009Q4

REPORT INFORMATION
  Report Type: 
  Country: None (occurrence: None)
  Receive Date: 20091109
  Receipt Date: 20091102
  Transmission Date: 20100525
  Serious: Yes (Other)
  Sender: FDA-Public Use
  Company Number: CHPA2009US21034

PATIENT
  Age: 47 Year
  Sex: Male
  Weight: 88.435 kg

DRUGS (1)
  1. THERAFLU FLU AND SORE THROAT (NCH) [Suspect]
     Indication: INFLUENZA
     Dosage: 1 PACKET, UNK
     Route: 048
     Dates: start: 20091025, end: 20091025

REACTIONS (2)
  - BLOOD GLUCOSE INCREASED [None]
  - WRONG TECHNIQUE IN DRUG USAGE PROCESS [None]
